FAERS Safety Report 12706958 (Version 5)
Quarter: 2020Q3

REPORT INFORMATION
  Report Type: Spontaneous
  Country: US (occurrence: US)
  Receive Date: 20160901
  Receipt Date: 20200825
  Transmission Date: 20201102
  Serious: Yes (Congenital Anomaly, Other)
  Sender: FDA-Public Use
  Company Number: PHEH2016US021879

PATIENT
  Sex: Male

DRUGS (2)
  1. ZOFRAN [Suspect]
     Active Substance: ONDANSETRON HYDROCHLORIDE
     Indication: FOETAL EXPOSURE DURING PREGNANCY
     Dosage: MOTHER^S DOSE: 8 MG, QD
     Route: 064
  2. ZOFRAN [Suspect]
     Active Substance: ONDANSETRON HYDROCHLORIDE
     Indication: FOETAL EXPOSURE DURING PREGNANCY
     Dosage: UNK
     Route: 064

REACTIONS (19)
  - Hypospadias [Unknown]
  - Atrial septal defect [Unknown]
  - Congenital aortic valve incompetence [Unknown]
  - Upper respiratory tract infection [Unknown]
  - Penile torsion [Unknown]
  - Speech disorder developmental [Unknown]
  - Ear pain [Unknown]
  - Diarrhoea [Unknown]
  - Reading disorder [Unknown]
  - Congenital aortic stenosis [Unknown]
  - Injury [Unknown]
  - Dermatitis diaper [Unknown]
  - Ventricular septal defect [Unknown]
  - Hydrocele [Unknown]
  - Left-to-right cardiac shunt [Unknown]
  - Cardiac murmur [Unknown]
  - Penis disorder [Unknown]
  - Foetal exposure during pregnancy [Unknown]
  - Congenital umbilical hernia [Unknown]
